FAERS Safety Report 12346816 (Version 1)
Quarter: 2016Q2

REPORT INFORMATION
  Report Type: Report from Study
  Country: US (occurrence: US)
  Receive Date: 20160509
  Receipt Date: 20160509
  Transmission Date: 20160815
  Serious: No
  Sender: FDA-Public Use
  Company Number: PHEH2014US008400

PATIENT
  Age: 57 Year
  Sex: Female
  Weight: 93 kg

DRUGS (3)
  1. GLEEVEC [Suspect]
     Active Substance: IMATINIB MESYLATE
     Indication: GASTRIC CANCER
     Dosage: 400 MG, QD
     Route: 048
     Dates: start: 20120112, end: 20150112
  2. HYZAAR [Concomitant]
     Active Substance: HYDROCHLOROTHIAZIDE\LOSARTAN POTASSIUM
     Indication: PRODUCT USED FOR UNKNOWN INDICATION
     Dosage: 100/25 OT, QD
     Route: 065
  3. GLEEVEC [Suspect]
     Active Substance: IMATINIB MESYLATE
     Indication: SMALL INTESTINE CARCINOMA

REACTIONS (3)
  - Skin discolouration [Recovered/Resolved]
  - Nausea [Recovered/Resolved]
  - Inappropriate schedule of drug administration [Unknown]

NARRATIVE: CASE EVENT DATE: 20150124
